FAERS Safety Report 12541424 (Version 1)
Quarter: 2016Q3

REPORT INFORMATION
  Report Type: Spontaneous
  Country: JP (occurrence: JP)
  Receive Date: 20160708
  Receipt Date: 20160708
  Transmission Date: 20161109
  Serious: Yes (Life-Threatening, Other)
  Sender: FDA-Public Use
  Company Number: JP-ASTRAZENECA-2016SE73985

PATIENT
  Age: 22 Year
  Sex: Female

DRUGS (6)
  1. ANTI-ANXIETY AGENT [Concomitant]
     Active Substance: UNSPECIFIED INGREDIENT
     Dosage: 23.0DF ONCE/SINGLE ADMINISTRATION
     Dates: start: 20160703
  2. ANTI-PARKINSON^S DISEASE DRUG [Concomitant]
     Dosage: 6.0DF ONCE/SINGLE ADMINISTRATION
     Dates: start: 20160703
  3. SEROQUEL [Suspect]
     Active Substance: QUETIAPINE FUMARATE
     Indication: SUICIDE ATTEMPT
     Dosage: 2900.0MG ONCE/SINGLE ADMINISTRATION
     Route: 048
     Dates: start: 20160703, end: 20160703
  4. PSYCHONEUROTIC AGENT [Concomitant]
     Dosage: 6.0DF ONCE/SINGLE ADMINISTRATION
     Dates: start: 20160703
  5. DRUGS FOR DIGESTIVE ORGANS [Concomitant]
     Dosage: 23.0DF ONCE/SINGLE ADMINISTRATION
     Dates: start: 20160703
  6. SEDATIVE-HYPNOTIC DRUGS [Concomitant]
     Dates: start: 20160703

REACTIONS (3)
  - Suicide attempt [Unknown]
  - Intentional overdose [Unknown]
  - Coma [Unknown]

NARRATIVE: CASE EVENT DATE: 201607
